FAERS Safety Report 9881112 (Version 1)
Quarter: 2014Q1

REPORT INFORMATION
  Report Type: Spontaneous
  Country: US (occurrence: US)
  Receive Date: 20140207
  Receipt Date: 20140207
  Transmission Date: 20141002
  Serious: No
  Sender: FDA-Public Use
  Company Number: US-PFIZER INC-2014031033

PATIENT
  Sex: Female
  Weight: 65.76 kg

DRUGS (1)
  1. CELEBREX [Suspect]
     Dosage: 100 MG, 1X/DAY
     Route: 048
     Dates: start: 2013, end: 201401

REACTIONS (2)
  - Rash [Unknown]
  - Pain [Unknown]
